FAERS Safety Report 7159528-6 (Version None)
Quarter: 2010Q4

REPORT INFORMATION
  Report Type: 
  Country: None (occurrence: None)
  Receive Date: 20101214
  Receipt Date: 20100916
  Transmission Date: 20110411
  Serious: No
  Sender: FDA-Public Use
  Company Number: US-ASTRAZENECA-2010SE43686

PATIENT
  Age: 87 Year
  Sex: Male

DRUGS (4)
  1. CRESTOR [Suspect]
     Indication: BLOOD CHOLESTEROL
     Route: 048
     Dates: start: 20100909
  2. TENORMIN [Concomitant]
  3. DIAZIDE [Concomitant]
  4. FISH OIL [Concomitant]

REACTIONS (1)
  - BLOOD PRESSURE INCREASED [None]
